FAERS Safety Report 7759292-3 (Version None)
Quarter: 2011Q3

REPORT INFORMATION
  Report Type: 
  Country: None (occurrence: None)
  Receive Date: 20110919
  Receipt Date: 20110912
  Transmission Date: 20111222
  Serious: Yes (Death, Life-Threatening, Other)
  Sender: FDA-Public Use
  Company Number: JP-PFIZER INC-2009256730

PATIENT
  Age: 34 Day
  Sex: Male
  Weight: 0.55 kg

DRUGS (14)
  1. CEFOTAX [Concomitant]
     Dates: start: 20090725, end: 20090729
  2. MICAFUNGIN SODIUM [Concomitant]
     Dates: start: 20090720, end: 20090801
  3. ZYVOX [Suspect]
     Indication: SKIN INFECTION
  4. INDOMETHACIN [Suspect]
     Dosage: UNK
     Dates: start: 20090730, end: 20090731
  5. AMBISOME [Concomitant]
     Dates: start: 20090802, end: 20090803
  6. DOPAMINE HCL [Concomitant]
     Dates: start: 20090101
  7. PITRESSIN [Concomitant]
     Dates: start: 20090801, end: 20090809
  8. PIPERACILLIN SODIUM [Concomitant]
     Dates: start: 20090806, end: 20090814
  9. ZYVOX [Suspect]
     Indication: INFECTION
     Dosage: 10 MG/KG, 3X/DAY
     Route: 042
     Dates: start: 20090805, end: 20090819
  10. INDOMETHACIN [Suspect]
     Dosage: UNK
     Dates: start: 20090801, end: 20090801
  11. CARBENIN [Concomitant]
     Dates: start: 20090730, end: 20090805
  12. TARGOCID [Concomitant]
     Dates: start: 20090731, end: 20090804
  13. INDOMETHACIN [Suspect]
     Dosage: UNK
     Dates: start: 20090716, end: 20090717
  14. DOBUTREX [Concomitant]
     Dates: start: 20090101

REACTIONS (4)
  - BONE MARROW TOXICITY [None]
  - HEPATIC CIRRHOSIS [None]
  - THROMBOCYTOPENIA [None]
  - HEPATIC FAILURE [None]
